FAERS Safety Report 9158813 (Version 3)
Quarter: 2013Q2

REPORT INFORMATION
  Report Type: Spontaneous
  Country: CO (occurrence: CO)
  Receive Date: 20130212
  Receipt Date: 20130412
  Transmission Date: 20140414
  Serious: Yes (Other)
  Sender: FDA-Public Use
  Company Number: CO-VERTEX PHARMACEUTICALS INC.-2013-001856

PATIENT
  Age: 37 Year
  Sex: Female
  Weight: 71 kg

DRUGS (3)
  1. INCIVO [Suspect]
     Indication: HEPATITIS C
     Dosage: 750 MG, TID
     Route: 048
     Dates: start: 20130123
  2. RIBAVIRIN [Concomitant]
     Dosage: DOSAGE FORM: UNKNOWN
     Route: 065
  3. PEGINTERFERON ALFA [Concomitant]
     Dosage: DOSAGE FORM: UNSPECIFIED
     Route: 065

REACTIONS (8)
  - Eosinophilic pustular folliculitis [Unknown]
  - Anorectal disorder [Unknown]
  - Haemorrhoids [Unknown]
  - Thrombocytopenia [Unknown]
  - Lymphopenia [Unknown]
  - Arthralgia [Unknown]
  - Fatigue [Unknown]
  - Diarrhoea [Unknown]
